FAERS Safety Report 4883245-6 (Version None)
Quarter: 2006Q1

REPORT INFORMATION
  Report Type: 
  Country: None (occurrence: None)
  Receive Date: 20060117
  Receipt Date: 20060117
  Transmission Date: 20060701
  Serious: Yes (Other)
  Sender: FDA-Public Use
  Company Number: None

PATIENT
  Sex: Male
  Weight: 71 kg

DRUGS (1)
  1. TRIMETHOPRIM SULFA 800MG / 160MG GENERIC [Suspect]
     Dosage: 1 BID PO
     Route: 048
     Dates: start: 20051115, end: 20051207

REACTIONS (3)
  - CONFUSIONAL STATE [None]
  - DIARRHOEA [None]
  - TREMOR [None]
